FAERS Safety Report 10153497 (Version 1)
Quarter: 2014Q2

REPORT INFORMATION
  Report Type: Spontaneous
  Country: US (occurrence: US)
  Receive Date: 20140505
  Receipt Date: 20140505
  Transmission Date: 20141212
  Serious: No
  Sender: FDA-Public Use
  Company Number: US-009507513-1405USA000337

PATIENT
  Sex: Female

DRUGS (2)
  1. IMPLANON [Suspect]
     Indication: CONTRACEPTION
     Dosage: STRENGTH: 68
     Route: 059
     Dates: start: 2007
  2. NEXPLANON [Suspect]
     Dosage: UNK
     Route: 059
     Dates: start: 2010

REACTIONS (2)
  - Overdose [Unknown]
  - No adverse event [Unknown]
